FAERS Safety Report 8502693-6 (Version None)
Quarter: 2012Q3

REPORT INFORMATION
  Report Type: 
  Country: None (occurrence: None)
  Receive Date: 20120706
  Receipt Date: 20120706
  Transmission Date: 20120928
  Serious: No
  Sender: FDA-Public Use
  Company Number: None

PATIENT
  Age: 29 Year
  Sex: Female

DRUGS (1)
  1. ESCITALOPRAM [Suspect]
     Dosage: 15 MG DAILY PO
     Route: 048
     Dates: start: 20120526, end: 20120529

REACTIONS (2)
  - PRODUCT SUBSTITUTION ISSUE [None]
  - GALACTORRHOEA [None]
